FAERS Safety Report 24017844 (Version 1)
Quarter: 2024Q2

REPORT INFORMATION
  Report Type: Spontaneous
  Country: IT (occurrence: IT)
  Receive Date: 20240627
  Receipt Date: 20240627
  Transmission Date: 20240716
  Serious: Yes (Other)
  Sender: FDA-Public Use
  Company Number: IT-MINISAL02-990965

PATIENT
  Age: 66 Year
  Sex: Male

DRUGS (2)
  1. GEMCITABINE [Suspect]
     Active Substance: GEMCITABINE
     Indication: Bladder cancer
     Dosage: 1300 MILLIGRAM (I CYCLE - THERAPY EVERY 21 DAYS, ON DAY 1 AND 8 - DAY 1 01/23/2024 - DAY 8 01/30/202
     Route: 042
     Dates: start: 20240123, end: 20240130
  2. CARBOPLATIN [Suspect]
     Active Substance: CARBOPLATIN
     Indication: Bladder cancer
     Dosage: 250 MILLIGRAM (I CYCLE - THERAPY EVERY 21 DAYS, ON DAY 1)
     Route: 042
     Dates: start: 20240123, end: 20240123

REACTIONS (3)
  - Myelosuppression [Recovering/Resolving]
  - Diarrhoea [Recovered/Resolved]
  - Off label use [Recovering/Resolving]

NARRATIVE: CASE EVENT DATE: 20240123
